FAERS Safety Report 4523914-0 (Version None)
Quarter: 2004Q4

REPORT INFORMATION
  Report Type: 
  Country: None (occurrence: None)
  Receive Date: 20041210
  Receipt Date: 20041201
  Transmission Date: 20050328
  Serious: Yes (Other)
  Sender: FDA-Public Use
  Company Number: HQWYE740002DEC04

PATIENT
  Age: 72 Year
  Sex: Female

DRUGS (1)
  1. PREMARIN [Suspect]
     Dosage: ORAL
     Route: 048

REACTIONS (1)
  - LUNG NEOPLASM MALIGNANT [None]
